FAERS Safety Report 10168655 (Version 2)
Quarter: 2015Q1

REPORT INFORMATION
  Report Type: Spontaneous
  Country: US (occurrence: None)
  Receive Date: 20140509
  Receipt Date: 20150303
  Transmission Date: 20150720
  Serious: Yes (Death, Disabling, Other)
  Sender: FDA-Public Use
  Company Number: 201404101

PATIENT
  Age: 53 Year
  Sex: Male
  Weight: 92.53 kg

DRUGS (6)
  1. ANDROGEL [Suspect]
     Active Substance: TESTOSTERONE
     Indication: BLOOD TESTOSTERONE DECREASED
  2. AXIRON [Suspect]
     Active Substance: TESTOSTERONE
     Indication: BLOOD TESTOSTERONE DECREASED
  3. LISINOPRIL. [Concomitant]
     Active Substance: LISINOPRIL
  4. TESTIM [Suspect]
     Active Substance: TESTOSTERONE
     Indication: BLOOD TESTOSTERONE DECREASED
     Route: 062
  5. METOPROLOL [Concomitant]
     Active Substance: METOPROLOL
  6. INSULIN [Concomitant]
     Active Substance: INSULIN NOS

REACTIONS (7)
  - Unevaluable event [None]
  - Myocardial infarction [None]
  - Balance disorder [None]
  - Feeling abnormal [None]
  - Cardiac failure [None]
  - Cardiac arrest [None]
  - Pain [None]

NARRATIVE: CASE EVENT DATE: 20141030
